FAERS Safety Report 7498513-1 (Version None)
Quarter: 2011Q2

REPORT INFORMATION
  Report Type: 
  Country: None (occurrence: None)
  Receive Date: 20110524
  Receipt Date: 20110505
  Transmission Date: 20111010
  Serious: Yes (Death, Other)
  Sender: FDA-Public Use
  Company Number: US-BAYER-201011370NA

PATIENT
  Sex: Male

DRUGS (15)
  1. TRASYLOL [Suspect]
     Dates: start: 20040501
  2. ASPIRIN [Concomitant]
     Dosage: 81 MG, QD
     Route: 048
  3. INDERAL [Concomitant]
     Dosage: 10 MG, QD
     Route: 048
  4. ATACAND HCT [Concomitant]
     Dosage: 16 MG, QD
     Route: 048
  5. COENZYME A [Concomitant]
     Dosage: QD
     Route: 048
  6. NITROGLYCERIN [Concomitant]
     Dosage: 0.4 MG, PRN
     Route: 048
  7. MOSEGOR [Concomitant]
     Route: 048
  8. TEGRETOL [Concomitant]
     Dosage: 100 MG, QD
     Route: 048
  9. REPLAGAL [Concomitant]
     Dosage: 2 Q1MON
     Route: 048
  10. LASIX [Concomitant]
     Dosage: 20 MG, QD
     Route: 048
  11. NORVASC [Concomitant]
     Dosage: 2.5 MG, QD
     Route: 048
  12. ARICEPT [Concomitant]
     Dosage: 5 MG, QD
     Route: 048
  13. PRAVACHOL [Concomitant]
     Dosage: 20 MG QD
     Route: 048
  14. IMDUR [Concomitant]
     Dosage: 120 MG, QD
     Route: 048
  15. VITAMIN E [Concomitant]
     Dosage: 400 IU, QD
     Route: 048

REACTIONS (14)
  - ANXIETY [None]
  - DEATH [None]
  - RENAL IMPAIRMENT [None]
  - PAIN [None]
  - DEPRESSION [None]
  - ANHEDONIA [None]
  - CEREBROVASCULAR ACCIDENT [None]
  - FEAR [None]
  - ORGAN FAILURE [None]
  - RENAL INJURY [None]
  - CARDIAC DISORDER [None]
  - RENAL FAILURE [None]
  - UNEVALUABLE EVENT [None]
  - INJURY [None]
